FAERS Safety Report 6315223-4 (Version None)
Quarter: 2009Q3

REPORT INFORMATION
  Report Type: 
  Country: None (occurrence: None)
  Receive Date: 20090819
  Receipt Date: 20090810
  Transmission Date: 20100115
  Serious: Yes (Other)
  Sender: FDA-Public Use
  Company Number: PHHY2009IT33769

PATIENT
  Sex: Male

DRUGS (2)
  1. ZOMETA [Suspect]
     Indication: PROSTATE CANCER METASTATIC
     Dosage: 4 MG MONTHLY
     Dates: start: 20070201, end: 20080331
  2. CASODEX [Concomitant]
     Dosage: 1 DF DAILY
     Route: 048
     Dates: start: 20070201, end: 20080331

REACTIONS (2)
  - JAW OPERATION [None]
  - OSTEONECROSIS [None]
